FAERS Safety Report 7006509-9 (Version None)
Quarter: 2010Q3

REPORT INFORMATION
  Report Type: 
  Country: None (occurrence: None)
  Receive Date: 20100921
  Receipt Date: 20100921
  Transmission Date: 20110219
  Serious: No
  Sender: FDA-Public Use
  Company Number: None

PATIENT
  Sex: Female
  Weight: 83.9154 kg

DRUGS (2)
  1. HYDROXYCHLOROQUINE SULFATE [Suspect]
     Indication: SJOGREN'S SYNDROME
     Dosage: 1 TWICE DAILY PO
     Route: 048
     Dates: start: 20100915, end: 20100920
  2. HYDROXYCHLOROQUINE SULFATE [Suspect]
     Indication: SYSTEMIC LUPUS ERYTHEMATOSUS
     Dosage: 1 TWICE DAILY PO
     Route: 048
     Dates: start: 20100915, end: 20100920

REACTIONS (3)
  - DRUG INEFFECTIVE [None]
  - PAIN [None]
  - PRODUCT SUBSTITUTION ISSUE [None]
